FAERS Safety Report 19488446 (Version 1)
Quarter: 2021Q3

REPORT INFORMATION
  Report Type: Spontaneous
  Country: US (occurrence: US)
  Receive Date: 20210702
  Receipt Date: 20210702
  Transmission Date: 20211014
  Serious: No
  Sender: FDA-Public Use
  Company Number: US-009507513-2107USA000213

PATIENT
  Age: 50 Year
  Sex: Male

DRUGS (2)
  1. ERTAPENEM SODIUM [Suspect]
     Active Substance: ERTAPENEM SODIUM
     Indication: SERRATIA INFECTION
  2. ERTAPENEM SODIUM [Suspect]
     Active Substance: ERTAPENEM SODIUM
     Indication: ENDOCARDITIS BACTERIAL

REACTIONS (1)
  - Product use in unapproved indication [Unknown]
